FAERS Safety Report 7074262-9 (Version None)
Quarter: 2010Q4

REPORT INFORMATION
  Report Type: 
  Country: None (occurrence: None)
  Receive Date: 20101029
  Receipt Date: 20101020
  Transmission Date: 20110411
  Serious: Yes (Hospitalization)
  Sender: FDA-Public Use
  Company Number: US-US-EMD SERONO, INC.-230183J10USA

PATIENT
  Sex: Female

DRUGS (5)
  1. REBIF [Suspect]
     Indication: RELAPSING-REMITTING MULTIPLE SCLEROSIS
     Route: 058
     Dates: start: 20080625, end: 20091207
  2. REBIF [Suspect]
     Route: 058
     Dates: start: 20100301, end: 20100101
  3. REBIF [Suspect]
     Route: 058
     Dates: start: 20100101
  4. TAMOXIFEN CITRATE [Concomitant]
     Dates: start: 20100101
  5. UNSPECIFIED MEDICATIONS [Concomitant]

REACTIONS (12)
  - ARTHROPATHY [None]
  - ASTHENIA [None]
  - ATRIAL FIBRILLATION [None]
  - BENIGN NEOPLASM OF THYROID GLAND [None]
  - CHILLS [None]
  - H1N1 INFLUENZA [None]
  - HEADACHE [None]
  - HYPOAESTHESIA [None]
  - MUSCULOSKELETAL STIFFNESS [None]
  - MYALGIA [None]
  - PNEUMONIA [None]
  - SCAR [None]
